FAERS Safety Report 7578026-9 (Version None)
Quarter: 2011Q2

REPORT INFORMATION
  Report Type: 
  Country: None (occurrence: None)
  Receive Date: 20110628
  Receipt Date: 20110622
  Transmission Date: 20111010
  Serious: Yes (Death)
  Sender: FDA-Public Use
  Company Number: JP-ABBOTT-09P-087-0590526-00

PATIENT
  Age: 22 Year
  Sex: Female
  Weight: 58 kg

DRUGS (29)
  1. MEIACT [Suspect]
     Indication: OTITIS MEDIA ACUTE
     Route: 048
     Dates: start: 20090108, end: 20090117
  2. DASEN [Suspect]
     Indication: OTITIS MEDIA ACUTE
     Route: 048
     Dates: start: 20090107, end: 20090110
  3. BETAMETHASONE [Suspect]
     Route: 048
     Dates: start: 20090119, end: 20090122
  4. TSUMURA SAIREITO EXTRACT GRANULE [Suspect]
     Indication: DRUG ERUPTION
     Route: 048
     Dates: start: 20090122, end: 20090123
  5. OLOPATADINE HCL [Suspect]
     Indication: DRUG ERUPTION
     Route: 048
     Dates: start: 20090123, end: 20090125
  6. FRESH FROZEN PLASMA [Concomitant]
     Dosage: TOTAL 9 UNITS
     Route: 042
     Dates: start: 20090214, end: 20090224
  7. MAP (RED CELL CONCENTRATES MANNITOL ADENINE PHOSPHATE) [Concomitant]
     Dosage: TOTAL 16 UNITS
     Route: 042
     Dates: start: 20090225, end: 20090306
  8. NIPOLAZIN [Suspect]
     Indication: RHINITIS ALLERGIC
     Route: 048
     Dates: start: 20090107, end: 20090119
  9. PREDNISOLONE [Suspect]
     Indication: DRUG ERUPTION
     Route: 048
     Dates: start: 20090122, end: 20090123
  10. PLATE [Concomitant]
     Dosage: TOTAL 85 UNITS
     Route: 042
     Dates: start: 20090307, end: 20090310
  11. PLATE [Concomitant]
     Dosage: TOTAL 85 UNITS
     Route: 042
     Dates: start: 20090225, end: 20090306
  12. ACETAMINOPHEN [Suspect]
     Indication: ANALGESIC THERAPY
     Route: 048
     Dates: start: 20090107
  13. BETAMETHASONE [Suspect]
     Indication: DRUG ERUPTION
     Route: 048
     Dates: start: 20090117, end: 20090119
  14. MUCOSTA [Suspect]
     Indication: DRUG ERUPTION
     Route: 048
     Dates: start: 20090123, end: 20090125
  15. CLARITHROMYCIN [Suspect]
     Indication: OTITIS MEDIA ACUTE
     Route: 048
     Dates: start: 20090117, end: 20090119
  16. MEIACT [Suspect]
     Route: 048
     Dates: start: 20090119, end: 20090121
  17. DASEN [Suspect]
     Route: 048
     Dates: start: 20090117, end: 20090119
  18. BETAMETHASONE [Suspect]
     Route: 048
     Dates: start: 20090123, end: 20090125
  19. FRESH FROZEN PLASMA [Concomitant]
     Dosage: TOTAL 120 UNITS
     Route: 042
     Dates: start: 20090130, end: 20090201
  20. FRESH FROZEN PLASMA [Concomitant]
     Dosage: TOTAL 15 UNITS
     Route: 042
     Dates: start: 20090225, end: 20090306
  21. GASLON N [Suspect]
     Indication: PROPHYLAXIS AGAINST GASTROINTESTINAL ULCER
     Route: 048
     Dates: start: 20090108, end: 20090122
  22. METHYCOBAL [Suspect]
     Indication: LABYRINTHITIS
     Route: 048
     Dates: start: 20090119, end: 20090122
  23. CELESTAMINE TAB [Suspect]
     Indication: DRUG ERUPTION
     Dosage: BETAMETHASONE 0.25 MG/CHLORPHENIRAMINE 2 MG
     Route: 048
     Dates: start: 20090122, end: 20090123
  24. MAP (RED CELL CONCENTRATES MANNITOL ADENINE PHOSPHATE) [Concomitant]
     Dosage: TOTAL 8 UNITS
     Route: 042
     Dates: start: 20090307, end: 20090310
  25. FLOMOX [Suspect]
     Indication: OTITIS MEDIA ACUTE
     Route: 048
     Dates: start: 20090107, end: 20090108
  26. BETAMETHASONE [Suspect]
     Indication: OTITIS MEDIA ACUTE
     Route: 048
     Dates: start: 20090108, end: 20090117
  27. SOL MEDROL [Concomitant]
     Route: 042
     Dates: start: 20090125, end: 20090127
  28. FRESH FROZEN PLASMA [Concomitant]
     Dosage: TOTAL 64 UNITS
     Route: 042
     Dates: start: 20090307, end: 20090310
  29. MAP (RED CELL CONCENTRATES MANNITOL ADENINE PHOSPHATE) [Concomitant]
     Dosage: TOTAL 4 UNITS
     Route: 042
     Dates: start: 20090214, end: 20090224

REACTIONS (11)
  - TRANSFUSION-RELATED ACUTE LUNG INJURY [None]
  - SPLENIC INFARCTION [None]
  - LIVER DISORDER [None]
  - MYCOPLASMA TEST POSITIVE [None]
  - ENDOCARDITIS [None]
  - CONTINUOUS HAEMODIAFILTRATION [None]
  - TOXIC EPIDERMAL NECROLYSIS [None]
  - STEVENS-JOHNSON SYNDROME [None]
  - BACTERAEMIA [None]
  - DISSEMINATED INTRAVASCULAR COAGULATION [None]
  - PELVIC VENOUS THROMBOSIS [None]
